FAERS Safety Report 13737959 (Version 1)
Quarter: 2017Q3

REPORT INFORMATION
  Report Type: Spontaneous
  Country: BR (occurrence: BR)
  Receive Date: 20170710
  Receipt Date: 20170710
  Transmission Date: 20171127
  Serious: Yes (Death, Hospitalization)
  Sender: FDA-Public Use
  Company Number: PHHY2009BR45227

PATIENT
  Age: 94 Year
  Sex: Female

DRUGS (1)
  1. HYDERGINE [Suspect]
     Active Substance: ERGOLOID MESYLATES
     Indication: MEMORY IMPAIRMENT
     Dosage: 25 DROPS DAILY
     Route: 048
     Dates: start: 1985

REACTIONS (2)
  - Multiple organ dysfunction syndrome [Fatal]
  - Urinary tract infection [Fatal]
